FAERS Safety Report 23875388 (Version 1)
Quarter: 2024Q2

REPORT INFORMATION
  Report Type: Spontaneous
  Country: US (occurrence: None)
  Receive Date: 20240519
  Receipt Date: 20240519
  Transmission Date: 20240716
  Serious: Yes (Life-Threatening, Hospitalization, Other)
  Sender: FDA-Public Use
  Company Number: None

PATIENT
  Age: 42 Year
  Sex: 0
  Weight: 72 kg

DRUGS (19)
  1. BRIVIACT [Suspect]
     Active Substance: BRIVARACETAM
     Indication: Seizure
     Dosage: 1 TABLET TWICE A DAY ORAL
     Route: 048
     Dates: start: 20230905
  2. LEVETIRACETAM [Suspect]
     Active Substance: LEVETIRACETAM
     Indication: Seizure
     Dosage: 2 TABLETAS TWICE A DAY ORAL
     Route: 048
     Dates: end: 20230905
  3. VIMPAT [Suspect]
     Active Substance: LACOSAMIDE
  4. ZONISAMIDE [Suspect]
     Active Substance: ZONISAMIDE
  5. PHENYTOIN [Suspect]
     Active Substance: PHENYTOIN
  6. DEXAMETHASONE [Suspect]
     Active Substance: DEXAMETHASONE
  7. FOLIC ACID [Suspect]
     Active Substance: FOLIC ACID
  8. ARIPIPRAZOLE [Concomitant]
     Active Substance: ARIPIPRAZOLE
  9. LACOSAMIDE [Concomitant]
     Active Substance: LACOSAMIDE
  10. HYDROCORTISONE [Concomitant]
     Active Substance: HYDROCORTISONE
  11. FUROSEMIDE [Concomitant]
     Active Substance: FUROSEMIDE
  12. POTASSIUM ER [Concomitant]
  13. WARFARIN [Concomitant]
     Active Substance: WARFARIN
  14. FERROUS SULFATE [Concomitant]
     Active Substance: FERROUS SULFATE
  15. B1 [Concomitant]
  16. PYRIDOXINE HYDROCHLORIDE [Concomitant]
     Active Substance: PYRIDOXINE HYDROCHLORIDE
  17. MULTI-VITAMIN [Concomitant]
     Active Substance: .ALPHA.-TOCOPHEROL ACETATE, DL-\ASCORBIC ACID\CYANOCOBALAMIN\FLUORIDE ION\FOLIC ACID\NIACIN\PYRIDOXI
  18. VITAMIN D-2 [Concomitant]
  19. PANTOPRAZOLE [Concomitant]
     Active Substance: PANTOPRAZOLE

REACTIONS (15)
  - Drug level above therapeutic [None]
  - Hepatic failure [None]
  - Renal failure [None]
  - Psychotic disorder [None]
  - Dehydration [None]
  - Fatigue [None]
  - Agitation [None]
  - Paranoia [None]
  - Cognitive disorder [None]
  - Confusional state [None]
  - Blood triglycerides increased [None]
  - Thrombosis [None]
  - Infection [None]
  - Muscle atrophy [None]
  - Encephalopathy [None]
